FAERS Safety Report 7690706-3 (Version None)
Quarter: 2011Q3

REPORT INFORMATION
  Report Type: 
  Country: None (occurrence: None)
  Receive Date: 20110818
  Receipt Date: 20110811
  Transmission Date: 20111222
  Serious: No
  Sender: FDA-Public Use
  Company Number: ES-SANOFI-AVENTIS-2011SA016756

PATIENT
  Age: 28 Year
  Sex: Female

DRUGS (7)
  1. OMEPRAZOLE [Concomitant]
     Route: 065
     Dates: start: 20090201
  2. ATRISCAL [Concomitant]
     Indication: PAIN
     Route: 065
     Dates: start: 20090201
  3. ZAMENE [Concomitant]
     Route: 065
     Dates: start: 20101103
  4. YASMIN [Concomitant]
     Route: 065
     Dates: start: 20090201
  5. TARDYFERON /GFR/ [Concomitant]
     Route: 065
  6. COLECALCIFEROL [Concomitant]
     Route: 065
     Dates: start: 20090201
  7. ARAVA [Suspect]
     Indication: RHEUMATOID ARTHRITIS
     Route: 048
     Dates: start: 20071201, end: 20110101

REACTIONS (1)
  - MATERNAL EXPOSURE DURING PREGNANCY [None]
